FAERS Safety Report 24943542 (Version 3)
Quarter: 2025Q3

REPORT INFORMATION
  Report Type: Report from Study
  Country: US (occurrence: US)
  Receive Date: 20250207
  Receipt Date: 20250812
  Transmission Date: 20251020
  Serious: Yes (Other)
  Sender: ALEXION PHARMACEUTICALS
  Company Number: US-AstraZeneca-CH-00798278A

PATIENT
  Sex: Female

DRUGS (3)
  1. ULTOMIRIS [Suspect]
     Active Substance: RAVULIZUMAB-CWVZ
     Route: 065
  2. VOYDEYA [Suspect]
     Active Substance: DANICOPAN
     Dosage: 25 MILLIGRAM, TID
     Route: 065
  3. MODAFINIL [Suspect]
     Active Substance: MODAFINIL
     Indication: Fatigue
     Route: 065

REACTIONS (12)
  - Thrombocytopenia [Unknown]
  - Narcolepsy [Unknown]
  - Bronchitis [Unknown]
  - Malaise [Unknown]
  - General physical health deterioration [Unknown]
  - Infectious mononucleosis [Unknown]
  - Fatigue [Unknown]
  - Haemoglobin decreased [Unknown]
  - Weight decreased [Unknown]
  - Muscle spasms [Unknown]
  - Sleep disorder [Unknown]
  - Off label use [Unknown]
